FAERS Safety Report 7428712-6 (Version None)
Quarter: 2011Q2

REPORT INFORMATION
  Report Type: 
  Country: None (occurrence: None)
  Receive Date: 20110421
  Receipt Date: 20110413
  Transmission Date: 20111010
  Serious: Yes (Hospitalization)
  Sender: FDA-Public Use
  Company Number: AU-ASTRAZENECA-2011SE18423

PATIENT
  Age: 64 Year
  Sex: Male

DRUGS (7)
  1. CRESTOR [Suspect]
     Route: 048
     Dates: start: 20080801, end: 20081001
  2. NORVASC [Concomitant]
     Indication: CORONARY ARTERY DISEASE
     Route: 048
  3. CRESTOR [Suspect]
     Route: 048
     Dates: end: 20090501
  4. PLAVIX [Concomitant]
     Indication: CORONARY ARTERY DISEASE
     Route: 048
  5. CRESTOR [Suspect]
     Route: 048
     Dates: start: 20081101, end: 20090101
  6. AVAPRO [Concomitant]
     Indication: HYPERTENSION
     Route: 048
  7. ATENOLOL [Concomitant]
     Indication: CORONARY ARTERY DISEASE
     Route: 048

REACTIONS (6)
  - CORONARY ARTERY DISEASE [None]
  - BLOOD CREATINE PHOSPHOKINASE INCREASED [None]
  - ASTHENIA [None]
  - MYOPATHY [None]
  - DYSSTASIA [None]
  - MUSCULAR WEAKNESS [None]
